FAERS Safety Report 6290114-6 (Version None)
Quarter: 2009Q3

REPORT INFORMATION
  Report Type: 
  Country: None (occurrence: None)
  Receive Date: 20090730
  Receipt Date: 20081124
  Transmission Date: 20100115
  Serious: No
  Sender: FDA-Public Use
  Company Number: US-BRISTOL-MYERS SQUIBB COMPANY-14417893

PATIENT
  Age: 75 Year
  Sex: Female
  Weight: 97 kg

DRUGS (3)
  1. COUMADIN [Suspect]
     Dosage: TAKEN FOR 5 YEARS.
  2. SYNTHROID [Concomitant]
  3. BLOOD PRESSURE MEDICATION [Concomitant]

REACTIONS (2)
  - PAIN [None]
  - PARAESTHESIA [None]
